FAERS Safety Report 24548848 (Version 12)
Quarter: 2025Q1

REPORT INFORMATION
  Report Type: Report from Study
  Country: US (occurrence: US)
  Receive Date: 20241025
  Receipt Date: 20250303
  Transmission Date: 20250408
  Serious: Yes (Hospitalization, Other)
  Sender: GILEAD
  Company Number: US-GILEAD-2024-0689820

PATIENT
  Sex: Female

DRUGS (4)
  1. AMBRISENTAN [Suspect]
     Active Substance: AMBRISENTAN
     Indication: Pulmonary hypertension
     Dosage: 10 MG, QD
     Route: 065
     Dates: start: 20190925
  2. REVATIO [Concomitant]
     Active Substance: SILDENAFIL CITRATE
  3. TYVASO [Concomitant]
     Active Substance: TREPROSTINIL
  4. TYVASO DPI [Concomitant]
     Active Substance: TREPROSTINIL

REACTIONS (36)
  - Influenza [Not Recovered/Not Resolved]
  - Ill-defined disorder [Not Recovered/Not Resolved]
  - Oropharyngeal pain [Not Recovered/Not Resolved]
  - Catheterisation cardiac [Unknown]
  - Bacterial vulvovaginitis [Not Recovered/Not Resolved]
  - Nasal congestion [Not Recovered/Not Resolved]
  - Pruritus [Unknown]
  - Blister [Unknown]
  - Nervousness [Unknown]
  - Heart rate increased [Unknown]
  - Chest discomfort [Unknown]
  - Troponin increased [Unknown]
  - Multiple allergies [Unknown]
  - Pain [Unknown]
  - Infection [Unknown]
  - Abdominal discomfort [Unknown]
  - Lower respiratory tract congestion [Unknown]
  - Oral infection [Unknown]
  - Arthropod bite [Unknown]
  - Allergy to arthropod bite [Unknown]
  - Productive cough [Unknown]
  - Hyperchlorhydria [Unknown]
  - Vulvovaginal burning sensation [Unknown]
  - Infected bite [Unknown]
  - Cellulitis [Not Recovered/Not Resolved]
  - Swelling [Not Recovered/Not Resolved]
  - Malaise [Unknown]
  - Bacterial vaginosis [Unknown]
  - Arthralgia [Unknown]
  - Nasopharyngitis [Unknown]
  - Headache [Unknown]
  - Hypertension [Unknown]
  - Bronchitis [Unknown]
  - Intentional dose omission [Unknown]
  - Paranasal sinus discomfort [Unknown]
  - Pyrexia [Recovered/Resolved]
